FAERS Safety Report 6713831-X (Version None)
Quarter: 2010Q2

REPORT INFORMATION
  Report Type: 
  Country: None (occurrence: None)
  Receive Date: 20100506
  Receipt Date: 20100430
  Transmission Date: 20101027
  Serious: Yes (Death, Other)
  Sender: FDA-Public Use
  Company Number: GB-PFIZER INC-2010035359

PATIENT
  Age: 42 Year
  Sex: Male

DRUGS (4)
  1. FLUCONAZOLE [Suspect]
     Dosage: UNK
  2. PHENYTOIN [Suspect]
     Dosage: UNK
  3. CIPROFLOXACIN [Suspect]
     Dosage: UNK
  4. METRONIDAZOLE [Suspect]
     Dosage: UNK

REACTIONS (7)
  - ACUTE HEPATIC FAILURE [None]
  - ATRIAL FIBRILLATION [None]
  - COAGULOPATHY [None]
  - GASTROINTESTINAL HAEMORRHAGE [None]
  - HYPOGLYCAEMIA [None]
  - IDIOSYNCRATIC DRUG REACTION [None]
  - METABOLIC ACIDOSIS [None]
